FAERS Safety Report 13864538 (Version 1)
Quarter: 2017Q3

REPORT INFORMATION
  Report Type: Spontaneous
  Country: US (occurrence: US)
  Receive Date: 20170813
  Receipt Date: 20170813
  Transmission Date: 20171127
  Serious: Yes (Disabling)
  Sender: FDA-Public Use
  Company Number: None

PATIENT
  Age: 59 Year
  Sex: Female
  Weight: 67.5 kg

DRUGS (9)
  1. A [Concomitant]
  2. VITAMIN D3 [Concomitant]
     Active Substance: CHOLECALCIFEROL
  3. E [Concomitant]
  4. PREDNISONE ACETATE OPTHOLMIC SUSPENSION  USP 1% [Suspect]
     Active Substance: PREDNISONE ACETATE
     Indication: KERATITIS INTERSTITIAL
     Dosage: QUANTITY:1 DROP(S);OTHER FREQUENCY:9X A DAY EVERY 2HR;?
     Route: 047
     Dates: start: 20170811, end: 20170812
  5. B [Concomitant]
  6. VITAMIN B12 [Concomitant]
     Active Substance: CYANOCOBALAMIN
  7. MAGNESIUM [Concomitant]
     Active Substance: MAGNESIUM
  8. VALICYCLOVIR [Concomitant]
  9. C [Concomitant]

REACTIONS (2)
  - Vision blurred [None]
  - Halo vision [None]

NARRATIVE: CASE EVENT DATE: 20170812
